FAERS Safety Report 15926251 (Version 2)
Quarter: 2019Q1

REPORT INFORMATION
  Report Type: Spontaneous
  Country: US (occurrence: US)
  Receive Date: 20190205
  Receipt Date: 20190219
  Transmission Date: 20190417
  Serious: No
  Sender: FDA-Public Use
  Company Number: US-ALLERGAN-1831139US

PATIENT
  Sex: Female

DRUGS (3)
  1. BOTOX [Suspect]
     Active Substance: ONABOTULINUMTOXINA
     Indication: MIGRAINE
     Dosage: UNK(31 INJECTIONS), SINGLE
     Route: 030
     Dates: start: 20180514, end: 20180514
  2. VITAMIN D [Concomitant]
     Active Substance: CHOLECALCIFEROL
     Indication: MULTIPLE SCLEROSIS
     Dosage: UNK
     Route: 065
  3. RESTASIS [Concomitant]
     Active Substance: CYCLOSPORINE
     Indication: DRY EYE
     Dosage: 2 GTT, BID
     Route: 047

REACTIONS (20)
  - Bruxism [Not Recovered/Not Resolved]
  - Sensation of foreign body [Unknown]
  - Musculoskeletal stiffness [Not Recovered/Not Resolved]
  - Vision blurred [Not Recovered/Not Resolved]
  - Dizziness [Unknown]
  - Asthenia [Unknown]
  - Suicidal ideation [Not Recovered/Not Resolved]
  - Sinusitis [Recovered/Resolved]
  - Dysphonia [Not Recovered/Not Resolved]
  - Drug ineffective [Unknown]
  - Visual impairment [Recovering/Resolving]
  - Eyelid ptosis [Recovering/Resolving]
  - Blood pressure increased [Unknown]
  - Stress [Not Recovered/Not Resolved]
  - Migraine [Not Recovered/Not Resolved]
  - Pyrexia [Recovered/Resolved]
  - Feeling of body temperature change [Recovered/Resolved]
  - Muscular weakness [Not Recovered/Not Resolved]
  - Nausea [Unknown]
  - Nasal congestion [Unknown]

NARRATIVE: CASE EVENT DATE: 20180523
